FAERS Safety Report 10723410 (Version 1)
Quarter: 2015Q1

REPORT INFORMATION
  Report Type: Spontaneous
  Country: US (occurrence: US)
  Receive Date: 20150120
  Receipt Date: 20150120
  Transmission Date: 20150721
  Serious: Yes (Other)
  Sender: FDA-Public Use
  Company Number: US-SA-2015SA005855

PATIENT
  Sex: Female

DRUGS (2)
  1. ALLEGRA [Suspect]
     Active Substance: FEXOFENADINE HYDROCHLORIDE
     Route: 048
  2. COUMADIN [Concomitant]
     Active Substance: WARFARIN SODIUM

REACTIONS (1)
  - Anticoagulation drug level increased [Unknown]
